FAERS Safety Report 23369664 (Version 1)
Quarter: 2024Q1

REPORT INFORMATION
  Report Type: Spontaneous
  Country: US (occurrence: None)
  Receive Date: 20240104
  Receipt Date: 20240104
  Transmission Date: 20240410
  Serious: Yes (Other)
  Sender: FDA-Public Use
  Company Number: None

PATIENT
  Age: 52 Year
  Sex: Male
  Weight: 148.5 kg

DRUGS (5)
  1. RYBELSUS [Suspect]
     Active Substance: SEMAGLUTIDE
     Indication: Glycosylated haemoglobin increased
     Dosage: OTHER QUANTITY : 1 CAPSULE(S);?
     Route: 048
     Dates: start: 20230628, end: 20231221
  2. GLIMEPIRIDE [Concomitant]
     Active Substance: GLIMEPIRIDE
  3. LEVOTHYROXINE [Concomitant]
     Active Substance: LEVOTHYROXINE
  4. TRIAMTERENE [Concomitant]
     Active Substance: TRIAMTERENE
  5. METFORMIN [Concomitant]
     Active Substance: METFORMIN HYDROCHLORIDE

REACTIONS (12)
  - Mental disorder [None]
  - Anxiety [None]
  - Tension [None]
  - Depression [None]
  - Suicidal ideation [None]
  - Fear [None]
  - Panic reaction [None]
  - Sleep disorder [None]
  - Decreased appetite [None]
  - Muscle rigidity [None]
  - Impaired work ability [None]
  - Therapy cessation [None]

NARRATIVE: CASE EVENT DATE: 20230819
